FAERS Safety Report 17182732 (Version 1)
Quarter: 2019Q4

REPORT INFORMATION
  Report Type: Spontaneous
  Country: ES (occurrence: ES)
  Receive Date: 20191220
  Receipt Date: 20191220
  Transmission Date: 20200122
  Serious: Yes (Other)
  Sender: FDA-Public Use
  Company Number: ALC2019ES002545

PATIENT

DRUGS (1)
  1. COLIRCUSI CICLOPLEJICO [Suspect]
     Active Substance: CYCLOPENTOLATE HYDROCHLORIDE
     Indication: FUNDOSCOPY
     Dosage: 1 GOTA EN CADA OJO CADA 15 MIN ( HASTA TRES DOSIFICACIONES)
     Route: 047
     Dates: start: 20191114, end: 20191114

REACTIONS (8)
  - Restlessness [Recovered/Resolved]
  - Photosensitivity reaction [Recovered/Resolved]
  - Eye pain [Recovered/Resolved]
  - Mydriasis [Recovered/Resolved]
  - Memory impairment [Recovered/Resolved]
  - Abnormal behaviour [Recovered/Resolved]
  - Dry mouth [Recovered/Resolved]
  - Tachycardia [Recovered/Resolved]

NARRATIVE: CASE EVENT DATE: 20191114
